FAERS Safety Report 14348302 (Version 2)
Quarter: 2018Q1

REPORT INFORMATION
  Report Type: Report from Study
  Country: US (occurrence: US)
  Receive Date: 20180103
  Receipt Date: 20180110
  Transmission Date: 20180509
  Serious: Yes (Death, Hospitalization, Other)
  Sender: FDA-Public Use
  Company Number: US-ACTELION-A-US2017-161155

PATIENT
  Age: 70 Year
  Sex: Female

DRUGS (1)
  1. OPSUMIT [Suspect]
     Active Substance: MACITENTAN
     Indication: PULMONARY ARTERIAL HYPERTENSION
     Dosage: 10 MG, QD
     Route: 048
     Dates: start: 20171116

REACTIONS (8)
  - Knee arthroplasty [Not Recovered/Not Resolved]
  - Prothrombin time abnormal [Unknown]
  - Terminal state [Unknown]
  - Memory impairment [Unknown]
  - Malaise [Unknown]
  - International normalised ratio fluctuation [Unknown]
  - Unevaluable event [Unknown]
  - Death [Fatal]
